FAERS Safety Report 17277158 (Version 1)
Quarter: 2020Q1

REPORT INFORMATION
  Report Type: Spontaneous
  Country: US (occurrence: US)
  Receive Date: 20191226
  Receipt Date: 20191226
  Transmission Date: 20200409
  Serious: Yes (Hospitalization)
  Sender: FDA-Public Use
  Company Number: None

PATIENT
  Age: 3 Year
  Sex: Male

DRUGS (3)
  1. MYCOPHENOLATE 200MG/ML SUSP [Suspect]
     Active Substance: MYCOPHENOLATE MOFETIL
     Indication: RENAL TRANSPLANT
     Dosage: ?          OTHER DOSE:2ML (400MG);OTHER ROUTE:AS DIRECTED?
     Dates: start: 20191203
  2. TACROLIMUS 0.5MG/ML ORAL SUSP [Suspect]
     Active Substance: TACROLIMUS
     Indication: RENAL TRANSPLANT
     Dates: start: 20191203
  3. RANITIDINE. [Suspect]
     Active Substance: RANITIDINE

REACTIONS (1)
  - Pyrexia [None]

NARRATIVE: CASE EVENT DATE: 201912
